FAERS Safety Report 8023980-4 (Version None)
Quarter: 2011Q4

REPORT INFORMATION
  Report Type: 
  Country: None (occurrence: None)
  Receive Date: 20111130
  Receipt Date: 20101117
  Transmission Date: 20120403
  Serious: Yes (Hospitalization)
  Sender: FDA-Public Use
  Company Number: 318578

PATIENT
  Age: 60 Year
  Sex: Male

DRUGS (3)
  1. NOVOLOG [Suspect]
     Indication: TYPE 1 DIABETES MELLITUS
     Dosage: 7 U PER HOUR/1 U BOLUS PRN, SUBCUTAN.-PUMP
     Route: 058
  2. CEFTRIAXONE (CEFTRIAXONE) ONGOING [Concomitant]
  3. NOVOLOG [Suspect]

REACTIONS (1)
  - BLOOD GLUCOSE INCREASED [None]
